FAERS Safety Report 8979218 (Version 4)
Quarter: 2013Q2

REPORT INFORMATION
  Report Type: Report from Study
  Country: GB (occurrence: GB)
  Receive Date: 20121221
  Receipt Date: 20130416
  Transmission Date: 20140414
  Serious: Yes (Death, Hospitalization)
  Sender: FDA-Public Use
  Company Number: GB-VIIV HEALTHCARE LIMITED-B0853906A

PATIENT
  Age: 32 Year
  Sex: Male

DRUGS (1)
  1. MARAVIROC [Suspect]
     Indication: HIV INFECTION
     Dosage: 150MG TWICE PER DAY
     Route: 048
     Dates: start: 20120528, end: 20120822

REACTIONS (2)
  - Cardiac arrest [Fatal]
  - Neutropenic sepsis [Recovering/Resolving]
